FAERS Safety Report 7503351-7 (Version None)
Quarter: 2011Q2

REPORT INFORMATION
  Report Type: 
  Country: None (occurrence: None)
  Receive Date: 20110525
  Receipt Date: 20110512
  Transmission Date: 20111010
  Serious: Yes (Hospitalization)
  Sender: FDA-Public Use
  Company Number: A0806877A

PATIENT
  Age: 76 Year
  Sex: Male
  Weight: 111.8 kg

DRUGS (10)
  1. LISINOPRIL [Concomitant]
  2. SINGULAIR [Concomitant]
  3. AVANDIA [Suspect]
     Indication: DIABETES MELLITUS
     Dosage: 4MG TWICE PER DAY
     Route: 048
     Dates: end: 20061201
  4. METOPROLOL TARTRATE [Concomitant]
  5. PRILOSEC [Concomitant]
  6. LASIX [Concomitant]
  7. NORVASC [Concomitant]
  8. GLIPIZIDE [Concomitant]
  9. CELEXA [Concomitant]
  10. SYNTHROID [Concomitant]

REACTIONS (2)
  - PNEUMONIA [None]
  - CARDIAC FAILURE CONGESTIVE [None]
